FAERS Safety Report 12918725 (Version 2)
Quarter: 2016Q4

REPORT INFORMATION
  Report Type: Report from Study
  Country: PL (occurrence: PL)
  Receive Date: 20161107
  Receipt Date: 20161219
  Transmission Date: 20170207
  Serious: Yes (Hospitalization)
  Sender: FDA-Public Use
  Company Number: PHHO2016PL015728

PATIENT
  Age: 51 Year
  Sex: Male
  Weight: 96.1 kg

DRUGS (4)
  1. IPP [Concomitant]
     Active Substance: PANTOPRAZOLE SODIUM
     Indication: PROPHYLAXIS
  2. AIN457 [Suspect]
     Active Substance: SECUKINUMAB
     Indication: ANKYLOSING SPONDYLITIS
     Dosage: 150 MG, WITHOUT LOAD
     Route: 058
     Dates: start: 20150903, end: 20151126
  3. AIN457 [Suspect]
     Active Substance: SECUKINUMAB
     Indication: ANKYLOSING SPONDYLITIS
     Route: 058
     Dates: start: 20151223, end: 20160831
  4. NAKLOFEN [Concomitant]
     Active Substance: DICLOFENAC SODIUM
     Indication: ANKYLOSING SPONDYLITIS
     Dosage: 75 MG, QD
     Route: 065
     Dates: start: 20140325, end: 20161005

REACTIONS (1)
  - VIth nerve disorder [Not Recovered/Not Resolved]

NARRATIVE: CASE EVENT DATE: 20160901
